FAERS Safety Report 4613536-5 (Version None)
Quarter: 2005Q1

REPORT INFORMATION
  Report Type: 
  Country: None (occurrence: None)
  Receive Date: 20050318
  Receipt Date: 20050318
  Transmission Date: 20050727
  Serious: Yes (Hospitalization)
  Sender: FDA-Public Use
  Company Number: None

PATIENT
  Age: 57 Year
  Sex: Male
  Weight: 64 kg

DRUGS (8)
  1. OXYCODONE AND ACETAMINOPHEN [Suspect]
     Indication: LUNG SQUAMOUS CELL CARCINOMA STAGE UNSPECIFIED
     Dosage: 1 Q 6 H PRN
     Dates: start: 20040901
  2. SERTRALINE HCL [Concomitant]
  3. LACTULOSE [Concomitant]
  4. IPRATROPIUM BROMIDE [Concomitant]
  5. COLCHICINE [Concomitant]
  6. ALBUTEROL [Concomitant]
  7. OMEPRAZOLE [Concomitant]
  8. TRAZODONE HCL [Concomitant]

REACTIONS (3)
  - ABASIA [None]
  - MEDICATION ERROR [None]
  - TOXIC INDUCED ENCEPHALOPATHY [None]
